FAERS Safety Report 6391256-7 (Version None)
Quarter: 2009Q4

REPORT INFORMATION
  Report Type: 
  Country: None (occurrence: None)
  Receive Date: 20091007
  Receipt Date: 20090930
  Transmission Date: 20100525
  Serious: Yes (Hospitalization)
  Sender: FDA-Public Use
  Company Number: JP-BAYER-200913163BYL

PATIENT
  Age: 55 Year
  Sex: Female
  Weight: 56 kg

DRUGS (21)
  1. NEXAVAR [Suspect]
     Indication: HEPATIC NEOPLASM MALIGNANT
     Dosage: UNIT DOSE: 200 MG
     Route: 048
     Dates: start: 20090714, end: 20090725
  2. NEXAVAR [Suspect]
     Dosage: UNIT DOSE: 200 MG
     Route: 048
     Dates: start: 20090725, end: 20090803
  3. NEXAVAR [Suspect]
     Dosage: TOTAL DAILY DOSE: 800 MG  UNIT DOSE: 200 MG
     Route: 048
     Dates: start: 20090804
  4. PARIET [Concomitant]
     Route: 048
  5. MAINTATE [Concomitant]
     Route: 048
  6. GASPORT [Concomitant]
     Route: 048
  7. PREDNISOLONE [Concomitant]
     Route: 048
  8. GASTER D [Concomitant]
     Route: 048
  9. CORINAEL L [Concomitant]
     Route: 048
  10. GLYCYRON [Concomitant]
     Route: 048
  11. PA [Concomitant]
     Route: 048
  12. JU-KAMA [Concomitant]
     Route: 048
  13. OZEX [Concomitant]
     Route: 048
  14. SAWATENE [Concomitant]
     Route: 048
  15. DERMOVATE [Concomitant]
     Route: 061
  16. LOPEMIN [Concomitant]
     Indication: DIARRHOEA
     Route: 048
  17. MYSLEE [Concomitant]
     Indication: INSOMNIA
     Route: 048
  18. LOXONIN [Concomitant]
     Indication: PAIN
     Route: 048
  19. ANTEBATE:OINTMENT [Concomitant]
     Route: 061
  20. UREPEARL [Concomitant]
     Route: 061
  21. INDERAL [Concomitant]
     Route: 048
     Dates: start: 20090902

REACTIONS (3)
  - OESOPHAGEAL VARICES HAEMORRHAGE [None]
  - PALMAR-PLANTAR ERYTHRODYSAESTHESIA SYNDROME [None]
  - RASH [None]
